FAERS Safety Report 4951458-0 (Version None)
Quarter: 2006Q1

REPORT INFORMATION
  Report Type: 
  Country: None (occurrence: None)
  Receive Date: 20060317
  Receipt Date: 20060313
  Transmission Date: 20060701
  Serious: Yes (Other)
  Sender: FDA-Public Use
  Company Number: NLWYE464413MAR06

PATIENT
  Sex: Male

DRUGS (5)
  1. EFFEXOR XR [Suspect]
     Dosage: 75 MG 1X PER 1 DAY; 150 MG 1X PER 1 DAY; 225 MG 1X PER 1 DAY
     Dates: end: 20051201
  2. EFFEXOR XR [Suspect]
     Dosage: 75 MG 1X PER 1 DAY; 150 MG 1X PER 1 DAY; 225 MG 1X PER 1 DAY
     Dates: start: 20041101
  3. EFFEXOR XR [Suspect]
     Dosage: 75 MG 1X PER 1 DAY; 150 MG 1X PER 1 DAY; 225 MG 1X PER 1 DAY
     Dates: start: 20051201
  4. BUSPIRONE HCL [Suspect]
     Dosage: 15 MG 2X PER 1 DAY; 20 MG 2X PER 1 DAY
     Dates: start: 20040601, end: 20050101
  5. BUSPIRONE HCL [Suspect]
     Dosage: 15 MG 2X PER 1 DAY; 20 MG 2X PER 1 DAY
     Dates: start: 20050101

REACTIONS (3)
  - CARDIOVERSION [None]
  - CONVULSION [None]
  - LOSS OF CONSCIOUSNESS [None]
